FAERS Safety Report 24366486 (Version 1)
Quarter: 2024Q3

REPORT INFORMATION
  Report Type: Spontaneous
  Country: CA (occurrence: CA)
  Receive Date: 20240926
  Receipt Date: 20240926
  Transmission Date: 20241016
  Serious: Yes (Death, Other)
  Sender: UCB
  Company Number: CA-UCBSA-2024047974

PATIENT
  Age: 33 Year
  Sex: Male

DRUGS (6)
  1. BRIVARACETAM [Suspect]
     Active Substance: BRIVARACETAM
     Indication: Epilepsy
     Dosage: 200 MILLIGRAM, ONCE DAILY (QD)
  2. LACOSAMIDE [Suspect]
     Active Substance: LACOSAMIDE
     Indication: Epilepsy
     Dosage: 200 MILLIGRAM, ONCE DAILY (QD)
  3. CARBAMAZEPINE [Suspect]
     Active Substance: CARBAMAZEPINE
     Indication: Epilepsy
     Dosage: 1200 MILLIGRAM, ONCE DAILY (QD)
  4. CARBAMAZEPINE [Suspect]
     Active Substance: CARBAMAZEPINE
     Dosage: 1200 MILLIGRAM, ONCE DAILY (QD)
  5. CLOBAZAM [Suspect]
     Active Substance: CLOBAZAM
     Indication: Epilepsy
     Dosage: 10 MILLIGRAM, ONCE DAILY (QD)
  6. CLOBAZAM [Suspect]
     Active Substance: CLOBAZAM
     Indication: Epilepsy
     Dosage: 10 GRAM, ONCE DAILY (QD)

REACTIONS (1)
  - Drug ineffective [Fatal]
